FAERS Safety Report 9350458 (Version 4)
Quarter: 2013Q3

REPORT INFORMATION
  Report Type: Spontaneous
  Country: US (occurrence: US)
  Receive Date: 20130617
  Receipt Date: 20130826
  Transmission Date: 20140515
  Serious: No
  Sender: FDA-Public Use
  Company Number: US-PFIZER INC-2013179496

PATIENT
  Age: 56 Year
  Sex: Female

DRUGS (12)
  1. ENBREL [Suspect]
     Dosage: 25 MG/ 0.5 ML
     Route: 065
  2. PROTONIX [Suspect]
     Dosage: 20 MG, UNK
  3. ETODOLAC [Suspect]
     Dosage: UNK
  4. TRAMADOL HCL [Suspect]
     Dosage: 50 MG, UNK
  5. AMITRIPTYLINE HYDROCHLORIDE [Suspect]
     Dosage: 10 MG, UNK
  6. ARAVA [Suspect]
     Dosage: 10 MG, UNK
  7. BACTRIM DS [Suspect]
     Dosage: UNK
  8. CODEINE SULFATE [Suspect]
     Dosage: 30 MG, UNK
  9. DARVON [Suspect]
     Dosage: UNK
  10. DEMEROL [Suspect]
     Dosage: 100 MG, UNK
  11. HUMIRA [Suspect]
     Dosage: 20 MG/ 0.4 ML
  12. LORTAB [Suspect]
     Dosage: 10-500, UNK

REACTIONS (1)
  - Drug hypersensitivity [Unknown]
